FAERS Safety Report 25231753 (Version 2)
Quarter: 2025Q2

REPORT INFORMATION
  Report Type: Spontaneous
  Country: US (occurrence: US)
  Receive Date: 20250423
  Receipt Date: 20250509
  Transmission Date: 20250717
  Serious: Yes (Life-Threatening, Hospitalization, Disabling)
  Sender: EISAI
  Company Number: US-Eisai-EC-2025-187813

PATIENT
  Age: 75 Year
  Sex: Female
  Weight: 93.4 kg

DRUGS (2)
  1. LEQEMBI [Suspect]
     Active Substance: LECANEMAB-IRMB
     Indication: Dementia Alzheimer^s type
     Dates: end: 202502
  2. LEQEMBI [Suspect]
     Active Substance: LECANEMAB-IRMB
     Dates: start: 20250224, end: 20250224

REACTIONS (4)
  - Amyloid related imaging abnormality-oedema/effusion [Recovering/Resolving]
  - Cognitive disorder [Recovering/Resolving]
  - Fall [Recovered/Resolved]
  - Head injury [Unknown]

NARRATIVE: CASE EVENT DATE: 20250101
